FAERS Safety Report 21726910 (Version 2)
Quarter: 2022Q4

REPORT INFORMATION
  Report Type: Spontaneous
  Country: US (occurrence: US)
  Receive Date: 20221214
  Receipt Date: 20221219
  Transmission Date: 20230113
  Serious: Yes (Hospitalization, Other)
  Sender: FDA-Public Use
  Company Number: US-AMGEN-USASP2022207673

PATIENT
  Age: 59 Year
  Sex: Female

DRUGS (1)
  1. REPATHA [Suspect]
     Active Substance: EVOLOCUMAB
     Indication: Blood cholesterol increased
     Dosage: 140 MILLIGRAM, Q2WK
     Route: 065
     Dates: start: 202003

REACTIONS (13)
  - Cerebrovascular accident [Unknown]
  - Dizziness [Unknown]
  - Unevaluable event [Unknown]
  - Coronary arterial stent insertion [Unknown]
  - Injection site haemorrhage [Unknown]
  - Chest pain [Recovered/Resolved]
  - Hepatic steatosis [Unknown]
  - COVID-19 [Unknown]
  - Anxiety [Unknown]
  - Cough [Unknown]
  - Urinary tract infection [Unknown]
  - Laboratory test abnormal [Unknown]
  - Adverse event [Unknown]

NARRATIVE: CASE EVENT DATE: 20220701
